FAERS Safety Report 5750959-5 (Version None)
Quarter: 2008Q2

REPORT INFORMATION
  Report Type: 
  Country: None (occurrence: None)
  Receive Date: 20080528
  Receipt Date: 20080520
  Transmission Date: 20081010
  Serious: Yes (Hospitalization, Other)
  Sender: FDA-Public Use
  Company Number: US-MERCK-0705USA02808

PATIENT
  Age: 74 Year
  Sex: Female

DRUGS (4)
  1. FOSAMAX [Suspect]
     Indication: OSTEOPOROSIS
     Route: 048
     Dates: start: 20020415, end: 20060321
  2. [THERAPY UNSPECIFIED] [Concomitant]
     Route: 065
     Dates: start: 20010501
  3. INDERAL [Concomitant]
     Indication: BLOOD PRESSURE
     Route: 065
     Dates: start: 20020401, end: 20060301
  4. INDAPAMIDE [Concomitant]
     Indication: BLOOD PRESSURE
     Route: 065
     Dates: start: 19930301

REACTIONS (27)
  - ABSCESS NECK [None]
  - ATRIAL FIBRILLATION [None]
  - BLOOD CALCIUM INCREASED [None]
  - BONE LESION [None]
  - CARDIAC DISORDER [None]
  - CELLULITIS [None]
  - DYSPHAGIA [None]
  - DYSPLASIA [None]
  - EYE DISORDER [None]
  - GASTROINTESTINAL DISORDER [None]
  - HELICOBACTER INFECTION [None]
  - HYPERKERATOSIS [None]
  - HYPOTHYROIDISM [None]
  - LIP AND/OR ORAL CAVITY CANCER [None]
  - MALNUTRITION [None]
  - MUCOSAL INFLAMMATION [None]
  - NEOPLASM MALIGNANT [None]
  - ORAL DISORDER [None]
  - OSTEONECROSIS [None]
  - OTITIS MEDIA CHRONIC [None]
  - PATELLA FRACTURE [None]
  - RESPIRATORY FAILURE [None]
  - SOLAR ELASTOSIS [None]
  - SPINAL OSTEOARTHRITIS [None]
  - SQUAMOUS CELL CARCINOMA [None]
  - THYROID NEOPLASM [None]
  - VAGINAL DISORDER [None]
